FAERS Safety Report 26054448 (Version 2)
Quarter: 2025Q4

REPORT INFORMATION
  Report Type: Report from Study
  Country: DZ (occurrence: DZ)
  Receive Date: 20251117
  Receipt Date: 20251119
  Transmission Date: 20260117
  Serious: Yes (Other)
  Sender: PFIZER
  Company Number: DZ-PFIZER INC-202500223681

PATIENT

DRUGS (3)
  1. BRENTUXIMAB VEDOTIN [Suspect]
     Active Substance: BRENTUXIMAB VEDOTIN
     Indication: B-cell lymphoma refractory
     Dosage: 1.8 MG/KG, EVERY 3 WEEKS (CYCLIC)
  2. NIVOLUMAB [Suspect]
     Active Substance: NIVOLUMAB
     Indication: B-cell lymphoma refractory
     Dosage: 3 MG/KG, CYCLIC
  3. PEMBROLIZUMAB [Suspect]
     Active Substance: PEMBROLIZUMAB
     Indication: B-cell lymphoma refractory
     Dosage: 200 MG, CYCLIC

REACTIONS (1)
  - Colitis [Unknown]
